FAERS Safety Report 24614464 (Version 6)
Quarter: 2025Q1

REPORT INFORMATION
  Report Type: Spontaneous
  Country: US (occurrence: US)
  Receive Date: 20241113
  Receipt Date: 20250327
  Transmission Date: 20250408
  Serious: Yes (Other)
  Sender: ASTELLAS
  Company Number: US-ASTELLAS-2024-AER-016568

PATIENT
  Age: 87 Year
  Sex: Male

DRUGS (6)
  1. IZERVAY [Suspect]
     Active Substance: AVACINCAPTAD PEGOL SODIUM
     Indication: Product used for unknown indication
     Dates: start: 20240830, end: 20240830
  2. IZERVAY [Suspect]
     Active Substance: AVACINCAPTAD PEGOL SODIUM
  3. IZERVAY [Suspect]
     Active Substance: AVACINCAPTAD PEGOL SODIUM
  4. IZERVAY [Suspect]
     Active Substance: AVACINCAPTAD PEGOL SODIUM
  5. IZERVAY [Suspect]
     Active Substance: AVACINCAPTAD PEGOL SODIUM
  6. IZERVAY [Suspect]
     Active Substance: AVACINCAPTAD PEGOL SODIUM

REACTIONS (5)
  - Blindness transient [Recovering/Resolving]
  - Intra-ocular injection complication [Recovered/Resolved]
  - Intraocular pressure increased [Recovering/Resolving]
  - Vision blurred [Not Recovered/Not Resolved]
  - Loss of visual contrast sensitivity [Not Recovered/Not Resolved]

NARRATIVE: CASE EVENT DATE: 20240830
